FAERS Safety Report 4866629-1 (Version None)
Quarter: 2005Q4

REPORT INFORMATION
  Report Type: 
  Country: None (occurrence: None)
  Receive Date: 20051221
  Receipt Date: 20051212
  Transmission Date: 20060501
  Serious: Yes (Other)
  Sender: FDA-Public Use
  Company Number: 2005AD000123

PATIENT
  Age: 43 Year
  Sex: Male

DRUGS (2)
  1. KEFLEX [Suspect]
     Indication: TOOTHACHE
     Dosage: 250  MG, QID
     Route: 048
     Dates: start: 20051204
  2. LOVAN            (FLUOXETINE HYDROCHLORIDE) [Suspect]
     Indication: DEPRESSION
     Dosage: 20 MG; QD
     Dates: start: 20050101, end: 20051206

REACTIONS (6)
  - DIZZINESS [None]
  - HAEMATOCHEZIA [None]
  - HEAD INJURY [None]
  - MALAISE [None]
  - MOUTH HAEMORRHAGE [None]
  - SYNCOPE [None]
